FAERS Safety Report 5889283-9 (Version None)
Quarter: 2008Q3

REPORT INFORMATION
  Report Type: 
  Country: None (occurrence: None)
  Receive Date: 20080917
  Receipt Date: 20080904
  Transmission Date: 20090109
  Serious: Yes (Hospitalization, Other)
  Sender: FDA-Public Use
  Company Number: 2008US000344

PATIENT
  Age: 61 Year
  Sex: Male
  Weight: 107.9 kg

DRUGS (15)
  1. AMEVIVE [Suspect]
     Indication: PSORIASIS
     Dosage: 15 MG, WEEKLY, INTRAMUSCULAR; 15 MG, WEEKLY, ORAL
     Dates: start: 20050622, end: 20050907
  2. AMEVIVE [Suspect]
     Indication: PSORIASIS
     Dosage: 15 MG, WEEKLY, INTRAMUSCULAR; 15 MG, WEEKLY, ORAL
     Dates: start: 20060125, end: 20060412
  3. PLAVIX [Concomitant]
  4. TRICOR [Concomitant]
  5. VYTORIN [Concomitant]
  6. ASPIRIN [Concomitant]
  7. ATENOLOL [Concomitant]
  8. LISINOPRIL [Concomitant]
  9. LOVAZA [Concomitant]
  10. METFORMIN HCL [Concomitant]
  11. ACTOS [Concomitant]
  12. GLUCOPHAGE [Concomitant]
  13. LIPITOR [Concomitant]
  14. ZESTRIL [Concomitant]
  15. RAPTIVA [Concomitant]

REACTIONS (7)
  - ACUTE MYOCARDIAL INFARCTION [None]
  - CORONARY ARTERY DISEASE [None]
  - CORONARY ARTERY OCCLUSION [None]
  - CORONARY ARTERY STENOSIS [None]
  - LEFT VENTRICULAR DYSFUNCTION [None]
  - RHEUMATOID ARTHRITIS [None]
  - VENTRICULAR HYPOKINESIA [None]
